FAERS Safety Report 8435863-6 (Version None)
Quarter: 2012Q2

REPORT INFORMATION
  Report Type: 
  Country: None (occurrence: None)
  Receive Date: 20120614
  Receipt Date: 20120612
  Transmission Date: 20120825
  Serious: Yes (Hospitalization)
  Sender: FDA-Public Use
  Company Number: FR-ROCHE-1003694

PATIENT
  Sex: Male

DRUGS (14)
  1. CELLCEPT [Suspect]
     Indication: PRODUCT USED FOR UNKNOWN INDICATION
     Route: 048
     Dates: start: 20110807, end: 20110827
  2. ASPIRIN [Concomitant]
     Route: 048
  3. PREDNISONE TAB [Concomitant]
  4. PANTOPRAZOLE [Concomitant]
  5. ATORVASTATIN [Concomitant]
  6. CORGARD [Concomitant]
  7. HYDROCHLOROTHIAZIDE [Concomitant]
  8. PENTOXIFYLLINE [Concomitant]
  9. FLECAINIDE ACETATE [Concomitant]
  10. BACTRIM DS [Concomitant]
  11. CACIT [Concomitant]
  12. VITAMIN D [Concomitant]
  13. ENALAPRIL MALEATE [Concomitant]
  14. NASONEX [Concomitant]

REACTIONS (3)
  - DEPRESSION [None]
  - AFFECTIVE DISORDER [None]
  - DELIRIUM [None]
